FAERS Safety Report 10342770 (Version 1)
Quarter: 2014Q3

REPORT INFORMATION
  Report Type: Spontaneous
  Country: US (occurrence: None)
  Receive Date: 20140723
  Receipt Date: 20140723
  Transmission Date: 20150326
  Serious: Yes (Hospitalization)
  Sender: FDA-Public Use
  Company Number: 2437146

PATIENT
  Age: 14 Month
  Sex: Male
  Weight: 9.7 kg

DRUGS (7)
  1. FLUID [Concomitant]
     Active Substance: UNSPECIFIED INGREDIENT
  2. BLOOD CELLS, PACKED HUMAN [Concomitant]
  3. TPN [Concomitant]
     Active Substance: AMINO ACIDS\DEXTROSE\ELECTROLYTES NOS\SOYBEAN OIL
  4. DOXORUBICIN [Suspect]
     Active Substance: DOXORUBICIN
     Indication: HEPATOBLASTOMA
  5. VINCRISTINE SULFATE. [Suspect]
     Active Substance: VINCRISTINE SULFATE
     Indication: HEPATOBLASTOMA
  6. CISPLATIN. [Suspect]
     Active Substance: CISPLATIN
     Indication: HEPATOBLASTOMA
  7. FLUOROURACIL. [Suspect]
     Active Substance: FLUOROURACIL
     Indication: HEPATOBLASTOMA

REACTIONS (10)
  - Diarrhoea [None]
  - Lung infiltration [None]
  - Cough [None]
  - Liver transplant [None]
  - Post procedural complication [None]
  - Pneumonia [None]
  - Diaphragmatic hernia [None]
  - Adenovirus test positive [None]
  - Choking [None]
  - Vomiting [None]
